FAERS Safety Report 18752922 (Version 1)
Quarter: 2021Q1

REPORT INFORMATION
  Report Type: Spontaneous
  Country: US (occurrence: US)
  Receive Date: 20210118
  Receipt Date: 20210118
  Transmission Date: 20210419
  Serious: No
  Sender: FDA-Public Use
  Company Number: US-TEVA-2021-US-1869003

PATIENT
  Sex: Female

DRUGS (1)
  1. COPAXONE [Suspect]
     Active Substance: GLATIRAMER ACETATE
     Dosage: FORM STRENGTH AND DOSE: UNKNOWN/FOR 2 YEARS
     Route: 065

REACTIONS (4)
  - Flushing [Unknown]
  - Product substitution issue [Unknown]
  - Injection site urticaria [Unknown]
  - Drug intolerance [Unknown]
